FAERS Safety Report 8176766-4 (Version None)
Quarter: 2012Q1

REPORT INFORMATION
  Report Type: 
  Country: None (occurrence: None)
  Receive Date: 20120301
  Receipt Date: 20120222
  Transmission Date: 20120608
  Serious: No
  Sender: FDA-Public Use
  Company Number: US-PFIZER INC-2011305019

PATIENT
  Age: 63 Year
  Sex: Female

DRUGS (6)
  1. VENTOLIN [Concomitant]
     Indication: ASTHMA
     Dosage: UNK
  2. PRIMATENE MIST [Concomitant]
     Indication: ASTHMA
     Dosage: UNK
  3. EPINEPHRINE [Suspect]
     Dosage: UNK
  4. PHENOBARBITAL TAB [Suspect]
     Dosage: UNK
  5. PRIMATENE MIST [Suspect]
     Dosage: UNK
  6. THEO-DUR [Suspect]

REACTIONS (2)
  - DRUG INEFFECTIVE [None]
  - RETCHING [None]
